FAERS Safety Report 4538470-0 (Version None)
Quarter: 2004Q4

REPORT INFORMATION
  Report Type: 
  Country: None (occurrence: None)
  Receive Date: 20041223
  Receipt Date: 20041223
  Transmission Date: 20050328
  Serious: No
  Sender: FDA-Public Use
  Company Number: None

PATIENT
  Age: 87 Year
  Sex: Male
  Weight: 103.4201 kg

DRUGS (2)
  1. METHADONE HCL [Suspect]
     Dosage: 10 MG PO AT 1100, + 2100
     Route: 048
  2. ACETAMINOPHEN AND HYDROCODONE BITARTRATE [Suspect]

REACTIONS (3)
  - ATRIAL FIBRILLATION [None]
  - OXYGEN SATURATION DECREASED [None]
  - UNRESPONSIVE TO PAIN STIMULI [None]
